FAERS Safety Report 8515975-9 (Version None)
Quarter: 2012Q3

REPORT INFORMATION
  Report Type: 
  Country: None (occurrence: None)
  Receive Date: 20120717
  Receipt Date: 20120716
  Transmission Date: 20120928
  Serious: No
  Sender: FDA-Public Use
  Company Number: US-PFIZER INC-2012171357

PATIENT
  Sex: Female

DRUGS (6)
  1. ELOCON [Concomitant]
     Dosage: 0.1 %, APPLY ONCE DAILY TO HANDS AND FEET
  2. LEVOTHYROXINE SODIUM [Concomitant]
     Dosage: 175 UG, 1X/DAY, TAKE ONE BY MOUTH EVERY DAY
     Route: 048
  3. EFFEXOR XR [Suspect]
     Dosage: 75 MG, 1X/DAY, 1T PO QD
     Route: 048
  4. LEVOTHYROXINE SODIUM [Concomitant]
     Dosage: 150 UG, 1X/DAY, TAKE ONE TABLET/CAPSULE BY MOUTH EVERY DAY
     Route: 048
  5. EPIPEN [Concomitant]
     Dosage: 0.3 MG/0.3ML, USE AS DIRECTED
  6. FLUTICASONE PROPIONATE [Concomitant]
     Dosage: 50 MCG/ACT SUSP, TWO SPRAYS EACH NOSTRIL ONCE DAILY

REACTIONS (2)
  - HYPOTHYROIDISM [None]
  - RHINITIS ALLERGIC [None]
